FAERS Safety Report 8312569-5 (Version None)
Quarter: 2012Q2

REPORT INFORMATION
  Report Type: 
  Country: None (occurrence: None)
  Receive Date: 20120425
  Receipt Date: 20120425
  Transmission Date: 20120825
  Serious: No
  Sender: FDA-Public Use
  Company Number: None

PATIENT
  Sex: Female
  Weight: 79.3795 kg

DRUGS (2)
  1. LOSARTAN POTASSIUM [Suspect]
     Indication: HYPERTENSION
     Dosage: 1 PILL ONCE A DAY BY MOUTH
     Dates: start: 20100101, end: 20120101
  2. BENICAR [Suspect]
     Indication: HYPERTENSION
     Dosage: 1 PILL ONCE A DAY BY MOUTH
     Route: 048

REACTIONS (2)
  - MYALGIA [None]
  - ARTHRALGIA [None]
